FAERS Safety Report 5421733-4 (Version None)
Quarter: 2007Q3

REPORT INFORMATION
  Report Type: 
  Country: None (occurrence: None)
  Receive Date: 20070821
  Receipt Date: 20070809
  Transmission Date: 20080115
  Serious: Yes (Hospitalization, Other)
  Sender: FDA-Public Use
  Company Number: US-PFIZER INC-2007067667

PATIENT
  Age: 72 Year
  Sex: Female

DRUGS (2)
  1. PHENELZINE SULFATE [Suspect]
     Indication: DEPRESSION
  2. QUETIAPINE FUMARATE [Interacting]
     Indication: MAJOR DEPRESSION
     Dosage: DAILY DOSE:100MG

REACTIONS (2)
  - DRUG INTERACTION [None]
  - SEROTONIN SYNDROME [None]
